FAERS Safety Report 6547007-6 (Version None)
Quarter: 2010Q1

REPORT INFORMATION
  Report Type: 
  Country: None (occurrence: None)
  Receive Date: 20100122
  Receipt Date: 20100115
  Transmission Date: 20100710
  Serious: Yes (Death)
  Sender: FDA-Public Use
  Company Number: B0626391A

PATIENT
  Sex: Female
  Weight: 110 kg

DRUGS (7)
  1. ZANAMIVIR [Suspect]
     Indication: H1N1 INFLUENZA
     Dosage: 600MG TWICE PER DAY
     Route: 042
     Dates: start: 20091229, end: 20100102
  2. ULTIVA [Concomitant]
     Route: 042
  3. MIDAZOLAM HCL [Concomitant]
     Route: 065
  4. CORDARONE [Concomitant]
     Route: 065
  5. DIGOXIN [Concomitant]
     Route: 065
  6. INIPOMP [Concomitant]
     Route: 065
  7. OSELTAMIVIR [Concomitant]
     Indication: H1N1 INFLUENZA
     Dosage: 150MG TWICE PER DAY
     Route: 048

REACTIONS (1)
  - MULTI-ORGAN FAILURE [None]
